FAERS Safety Report 23418835 (Version 1)
Quarter: 2024Q1

REPORT INFORMATION
  Report Type: Spontaneous
  Country: US (occurrence: US)
  Receive Date: 20240118
  Receipt Date: 20240118
  Transmission Date: 20240409
  Serious: No
  Sender: FDA-Public Use
  Company Number: US-SUNOVION-2024SUN000028

PATIENT

DRUGS (1)
  1. APTIOM [Suspect]
     Active Substance: ESLICARBAZEPINE ACETATE
     Dosage: 1200 MG (600 MG, 2 TABLETS A DAY)
     Route: 048

REACTIONS (3)
  - Illness [Unknown]
  - Brain fog [Unknown]
  - Memory impairment [Unknown]
